FAERS Safety Report 5279784-9 (Version None)
Quarter: 2007Q1

REPORT INFORMATION
  Report Type: 
  Country: None (occurrence: None)
  Receive Date: 20061220
  Receipt Date: 20060502
  Transmission Date: 20070707
  Serious: Yes (Hospitalization)
  Sender: FDA-Public Use
  Company Number: 251277

PATIENT
  Age: 86 Year
  Sex: Female
  Weight: 90.7 kg

DRUGS (8)
  1. NOVOLOG MIX 70/30 [Suspect]
     Indication: INSULIN-REQUIRING TYPE II DIABETES MELLITUS
     Dosage: 40 IU, BID, SUBCUTANEOUS
     Route: 058
     Dates: start: 20060220
  2. NOVOFINE 31 (NEEDLE) [Concomitant]
  3. ISORBIDE (ISOSORBIDE DINITRATE) [Concomitant]
  4. PREMARIN [Concomitant]
  5. HYZAAR (LOSARTAN POTASSIUM, HYDROCHLORTHIAZIDE) [Concomitant]
  6. METOPROLOL TARTRATE [Concomitant]
  7. AMITRIPTYLINE HCL [Concomitant]
  8. LASIX [Concomitant]

REACTIONS (1)
  - BLOOD GLUCOSE INCREASED [None]
